FAERS Safety Report 20777714 (Version 1)
Quarter: 2022Q2

REPORT INFORMATION
  Report Type: Report from Study
  Country: CZ (occurrence: CZ)
  Receive Date: 20220503
  Receipt Date: 20220503
  Transmission Date: 20220721
  Serious: Yes (Hospitalization, Other)
  Sender: FDA-Public Use
  Company Number: CZ-CELGENE-CZE-20220303611

PATIENT
  Age: 69 Year
  Sex: Female
  Weight: 58 kg

DRUGS (32)
  1. AZACITIDINE [Suspect]
     Active Substance: AZACITIDINE
     Indication: Myelodysplastic syndrome
     Route: 058
     Dates: start: 20211213
  2. VENETOCLAX [Suspect]
     Active Substance: VENETOCLAX
     Indication: Myelodysplastic syndrome
     Dosage: FREQUENCY TEXT: NOT PROVIDED
     Route: 065
  3. POTASSIUM CHLORIDE [Concomitant]
     Active Substance: POTASSIUM CHLORIDE
     Indication: Hypokalaemia
     Dosage: 1000 MILLIGRAM
     Route: 048
     Dates: start: 20220210
  4. EXJADE [Concomitant]
     Active Substance: DEFERASIROX
     Indication: Prophylaxis
     Dosage: 720 MILLIGRAM
     Route: 048
     Dates: start: 20220105
  5. GORDIUS [Concomitant]
     Indication: Back pain
     Dosage: 300 MILLIGRAM
     Route: 048
     Dates: start: 2016
  6. PANTOPRAZOLE SODIUM [Concomitant]
     Active Substance: PANTOPRAZOLE SODIUM
     Indication: Prophylaxis
     Dosage: 20 MILLIGRAM
     Route: 048
     Dates: start: 20220125
  7. TRAZODONE HYDROCHLORIDE [Concomitant]
     Active Substance: TRAZODONE HYDROCHLORIDE
     Indication: Prophylaxis
     Dosage: 150 MILLIGRAM
     Route: 048
     Dates: start: 2015
  8. RIVOTRIL [Concomitant]
     Active Substance: CLONAZEPAM
     Indication: Prophylaxis
     Dosage: AS REQUIRED
     Route: 048
     Dates: start: 202111
  9. BONVIVA [Concomitant]
     Active Substance: IBANDRONATE SODIUM
     Indication: Osteoporosis
     Dosage: 3 MILLIGRAM
     Route: 042
     Dates: start: 2017
  10. Vigantol [Concomitant]
     Indication: Vitamin supplementation
     Dosage: 20 DROPS
     Route: 048
     Dates: start: 2012
  11. METOCLOPRAMIDE HYDROCHLORIDE [Concomitant]
     Active Substance: METOCLOPRAMIDE HYDROCHLORIDE
     Indication: Prophylaxis of nausea and vomiting
     Dosage: AS REQUIRED
     Route: 048
     Dates: start: 20220103
  12. PRIMROSE OIL [Concomitant]
     Indication: Prophylaxis
     Dosage: FREQUENCY TEXT: 1 LAYER OF OIL (1 IN 1 AS REQUIRED)
     Route: 061
     Dates: start: 20211213
  13. ZOFRAN [Concomitant]
     Active Substance: ONDANSETRON HYDROCHLORIDE
     Indication: Prophylaxis of nausea and vomiting
     Dosage: 8 MILLIGRAM
     Route: 048
     Dates: start: 20220210, end: 20220216
  14. AMOXICILLIN\CLAVULANATE POTASSIUM [Concomitant]
     Active Substance: AMOXICILLIN\CLAVULANATE POTASSIUM
     Indication: Skin disorder
     Dosage: 3 GRAM
     Route: 048
     Dates: start: 20220210, end: 20220216
  15. BISEPTOL [Concomitant]
     Active Substance: SULFAMETHOXAZOLE\TRIMETHOPRIM
     Indication: Infection prophylaxis
     Dosage: 480 MILLIGRAM
     Route: 048
     Dates: start: 20220118
  16. METAMIZOLE [Concomitant]
     Active Substance: METAMIZOLE
     Indication: Fracture
     Dosage: AS REQUIRED
     Route: 048
     Dates: start: 20220207
  17. HUMAN RED BLOOD CELL [Concomitant]
     Active Substance: HUMAN RED BLOOD CELL
     Indication: Product used for unknown indication
     Dosage: 1 DOSAGE FORMS
     Route: 042
     Dates: start: 20211213, end: 20211213
  18. HUMAN RED BLOOD CELL [Concomitant]
     Active Substance: HUMAN RED BLOOD CELL
     Dosage: 1 DOSAGE FORMS
     Route: 042
     Dates: start: 20211222, end: 20211222
  19. HUMAN RED BLOOD CELL [Concomitant]
     Active Substance: HUMAN RED BLOOD CELL
     Dosage: 2 DOSAGE FORMS
     Route: 042
     Dates: start: 20211227, end: 20211227
  20. HUMAN RED BLOOD CELL [Concomitant]
     Active Substance: HUMAN RED BLOOD CELL
     Dosage: 1 DOSAGE FORMS
     Route: 042
     Dates: start: 20220127, end: 20220127
  21. HUMAN RED BLOOD CELL [Concomitant]
     Active Substance: HUMAN RED BLOOD CELL
     Dosage: 1 DOSAGE FORMS
     Route: 042
     Dates: start: 20220131, end: 20220131
  22. HUMAN RED BLOOD CELL [Concomitant]
     Active Substance: HUMAN RED BLOOD CELL
     Dosage: 1 DOSAGE FORMS
     Route: 042
     Dates: start: 20220203, end: 20220203
  23. HUMAN RED BLOOD CELL [Concomitant]
     Active Substance: HUMAN RED BLOOD CELL
     Dosage: 1 DOSAGE FORMS
     Route: 042
     Dates: start: 20220211, end: 20220211
  24. HUMAN RED BLOOD CELL [Concomitant]
     Active Substance: HUMAN RED BLOOD CELL
     Dosage: 1 DOSAGE FORMS
     Route: 042
     Dates: start: 20220216, end: 20220216
  25. PLATELETS [Concomitant]
     Active Substance: HUMAN PLATELET, ALLOGENIC
     Indication: Product used for unknown indication
     Dosage: 1 DOSAGE FORMS
     Route: 042
     Dates: start: 20211213, end: 20211213
  26. PLATELETS [Concomitant]
     Active Substance: HUMAN PLATELET, ALLOGENIC
     Dosage: 1 DOSAGE FORMS
     Route: 042
     Dates: start: 20211227, end: 20211227
  27. PLATELETS [Concomitant]
     Active Substance: HUMAN PLATELET, ALLOGENIC
     Dosage: 1 DOSAGE FORMS
     Route: 042
     Dates: start: 20220105, end: 20220105
  28. PLATELETS [Concomitant]
     Active Substance: HUMAN PLATELET, ALLOGENIC
     Dosage: 1 DOSAGE FORMS
     Route: 042
     Dates: start: 20220106, end: 20220106
  29. PLATELETS [Concomitant]
     Active Substance: HUMAN PLATELET, ALLOGENIC
     Dosage: 1 DOSAGE FORMS
     Route: 042
     Dates: start: 20220120, end: 20220120
  30. PLATELETS [Concomitant]
     Active Substance: HUMAN PLATELET, ALLOGENIC
     Dosage: 1 DOSAGE FORMS
     Route: 042
     Dates: start: 20220127, end: 20220127
  31. PLATELETS [Concomitant]
     Active Substance: HUMAN PLATELET, ALLOGENIC
     Dosage: 1 DOSAGE FORMS
     Route: 042
     Dates: start: 20220131, end: 20220131
  32. PLATELETS [Concomitant]
     Active Substance: HUMAN PLATELET, ALLOGENIC
     Dosage: 1 DOSAGE FORMS
     Route: 042
     Dates: start: 20220203, end: 20220203

REACTIONS (2)
  - Localised infection [Not Recovered/Not Resolved]
  - COVID-19 pneumonia [Not Recovered/Not Resolved]

NARRATIVE: CASE EVENT DATE: 20220228
